FAERS Safety Report 5095302-2 (Version None)
Quarter: 2006Q3

REPORT INFORMATION
  Report Type: 
  Country: None (occurrence: None)
  Receive Date: 20060731
  Receipt Date: 20060417
  Transmission Date: 20061208
  Serious: No
  Sender: FDA-Public Use
  Company Number: 2006PV012207

PATIENT
  Age: 38 Year
  Sex: Female
  Weight: 134.7183 kg

DRUGS (3)
  1. BYETTA [Suspect]
     Indication: DIABETES MELLITUS
     Dosage: 5 MCG; BID; SC
     Route: 058
     Dates: start: 20060405
  2. SKELAXIN [Concomitant]
  3. LORTAB [Concomitant]

REACTIONS (2)
  - INJECTION SITE RASH [None]
  - INTERVERTEBRAL DISC PROTRUSION [None]
